FAERS Safety Report 8955652 (Version 1)
Quarter: 2012Q4

REPORT INFORMATION
  Report Type: 
  Country: US (occurrence: US)
  Receive Date: 20121207
  Receipt Date: 20121207
  Transmission Date: 20130627
  Serious: Yes (Other)
  Sender: FDA-Public Use
  Company Number: US-PFIZER INC-2012308564

PATIENT
  Age: 50 Year
  Sex: Female
  Weight: 47.6 kg

DRUGS (1)
  1. IBUPROFEN [Suspect]
     Indication: DENTAL OPERATION
     Dosage: 800 mg, 3x/day
     Route: 048
     Dates: start: 201211, end: 201211

REACTIONS (1)
  - Angioedema [Not Recovered/Not Resolved]
